FAERS Safety Report 12496580 (Version 4)
Quarter: 2017Q1

REPORT INFORMATION
  Report Type: Spontaneous
  Country: DE (occurrence: DE)
  Receive Date: 20160624
  Receipt Date: 20170109
  Transmission Date: 20170428
  Serious: Yes (Other)
  Sender: FDA-Public Use
  Company Number: DE-CIPLA LTD.-2016DE08091

PATIENT

DRUGS (18)
  1. PANTOPRAZOLE [Concomitant]
     Active Substance: PANTOPRAZOLE SODIUM
     Dosage: UNK
     Route: 065
  2. MIRTAZAPINE. [Interacting]
     Active Substance: MIRTAZAPINE
     Dosage: 7.5 MG/TG
     Route: 048
     Dates: start: 20130512, end: 20130514
  3. ZOPICLONE [Concomitant]
     Active Substance: ZOPICLONE
     Dosage: UNK
     Route: 065
     Dates: start: 20130406
  4. L-THYROXINE [Concomitant]
     Active Substance: LEVOTHYROXINE
     Dosage: 15 UG/?
     Route: 065
     Dates: start: 20130423
  5. RAMIPRIL. [Suspect]
     Active Substance: RAMIPRIL
     Dosage: UNK
     Route: 048
     Dates: start: 20130411, end: 20130430
  6. MIRTAZAPINE. [Interacting]
     Active Substance: MIRTAZAPINE
     Dosage: 15 MG/TG
     Route: 048
     Dates: start: 20130506, end: 20130511
  7. BUPROPION. [Interacting]
     Active Substance: BUPROPION
     Dosage: 300 MG/TG
     Route: 048
     Dates: start: 20130418
  8. LORAZEPAM. [Concomitant]
     Active Substance: LORAZEPAM
     Dosage: UNK
     Route: 065
  9. TRAMAL [Concomitant]
     Active Substance: TRAMADOL
     Dosage: UNK
     Route: 065
  10. RAMIPRIL. [Interacting]
     Active Substance: RAMIPRIL
     Dosage: 5 MG/TG
     Dates: start: 20130501, end: 20130524
  11. MIRTAZAPINE. [Interacting]
     Active Substance: MIRTAZAPINE
     Dosage: 30 MG/TG
     Route: 048
     Dates: start: 20130406, end: 20130505
  12. QUILONIUM-R [Interacting]
     Active Substance: LITHIUM CARBONATE
     Dosage: 225 MG/TG
     Route: 048
     Dates: start: 20130426, end: 20130428
  13. QUETIAPINE. [Interacting]
     Active Substance: QUETIAPINE
     Dosage: UNK
     Route: 048
     Dates: end: 20130624
  14. HCT HEXAL [Interacting]
     Active Substance: HYDROCHLOROTHIAZIDE
     Dosage: 12.5 MG/TG
     Route: 048
     Dates: start: 20130412, end: 20130604
  15. QUILONIUM-R [Interacting]
     Active Substance: LITHIUM CARBONATE
     Indication: DEPRESSION
     Dosage: 50 MG/TG
     Route: 048
     Dates: start: 20130429, end: 20130501
  16. QUILONIUM-R [Interacting]
     Active Substance: LITHIUM CARBONATE
     Dosage: 675 MG/TG
     Route: 048
     Dates: start: 20130502, end: 20130502
  17. QUILONIUM-R [Interacting]
     Active Substance: LITHIUM CARBONATE
     Dosage: 225 MG/TG
     Route: 048
     Dates: start: 20130503, end: 20130503
  18. CARVEDILOL. [Concomitant]
     Active Substance: CARVEDILOL
     Dosage: UNK
     Route: 065

REACTIONS (4)
  - Psychomotor hyperactivity [Recovered/Resolved]
  - Confusional state [Recovered/Resolved]
  - Delirium [Recovered/Resolved]
  - Drug interaction [Unknown]

NARRATIVE: CASE EVENT DATE: 20130503
